FAERS Safety Report 7680276-8 (Version None)
Quarter: 2011Q3

REPORT INFORMATION
  Report Type: 
  Country: None (occurrence: None)
  Receive Date: 20110812
  Receipt Date: 20110803
  Transmission Date: 20111222
  Serious: Yes (Hospitalization)
  Sender: FDA-Public Use
  Company Number: FR-EISAI INC-E3810-04846-SPO-FR

PATIENT
  Sex: Female

DRUGS (6)
  1. DISCOTRINE [Concomitant]
     Dosage: UNKNOWN
     Route: 065
  2. AMOXICILLIN TRIHYDRATE [Concomitant]
     Dosage: UNKNOWN
     Route: 065
  3. ASPIRIN [Concomitant]
     Dosage: UNKNOWN
     Route: 048
  4. RABEPRAZOLE SODIUM [Suspect]
     Indication: ULCER
     Dosage: UNKNOWN
     Route: 048
     Dates: start: 20110607, end: 20110610
  5. TRANSIPEG [Concomitant]
     Dosage: UNKNOWN
     Route: 065
  6. ATENOLOL [Concomitant]
     Dosage: UNKNOWN
     Route: 065

REACTIONS (2)
  - HYPONATRAEMIA [None]
  - CONFUSIONAL STATE [None]
